FAERS Safety Report 9355682 (Version 1)
Quarter: 2013Q2

REPORT INFORMATION
  Report Type: Spontaneous
  Country: US (occurrence: US)
  Receive Date: 20130619
  Receipt Date: 20130619
  Transmission Date: 20140414
  Serious: Yes (Hospitalization)
  Sender: FDA-Public Use
  Company Number: US-ELI_LILLY_AND_COMPANY-US201306002049

PATIENT
  Sex: Female

DRUGS (7)
  1. CYMBALTA [Suspect]
     Indication: ANXIETY
     Dosage: 30 MG, UNKNOWN
     Dates: start: 201303
  2. CYMBALTA [Suspect]
     Indication: DEPRESSION
     Dosage: 60 MG, UNKNOWN
  3. CYMBALTA [Suspect]
     Indication: PAIN
     Dosage: 90 MG, UNKNOWN
  4. CYMBALTA [Suspect]
     Dosage: 120 MG, EACH MORNING
     Dates: end: 20130524
  5. NORVASC [Concomitant]
     Indication: BLOOD PRESSURE
     Dosage: 10 MG, QD
  6. XANAX [Concomitant]
     Indication: ANXIETY
     Dosage: 1 MG, UNKNOWN
  7. PROPRANOLOL [Concomitant]
     Dosage: 20 MG, BID

REACTIONS (7)
  - Intervertebral disc protrusion [Unknown]
  - Decreased appetite [Unknown]
  - Feeling abnormal [Unknown]
  - Apathy [Unknown]
  - Drug ineffective [Unknown]
  - Mobility decreased [Unknown]
  - Drug withdrawal syndrome [Unknown]
